FAERS Safety Report 11713441 (Version 1)
Quarter: 2015Q4

REPORT INFORMATION
  Report Type: Spontaneous
  Country: TW (occurrence: TW)
  Receive Date: 20151109
  Receipt Date: 20151109
  Transmission Date: 20160304
  Serious: Yes (Hospitalization, Other)
  Sender: FDA-Public Use
  Company Number: TW-ALVOGEN-2015-ALVOGEN-019441

PATIENT
  Age: 49 Year
  Sex: Male

DRUGS (9)
  1. TRAZODONE HYDROCHLORIDE. [Suspect]
     Active Substance: TRAZODONE HYDROCHLORIDE
     Indication: SCHIZOPHRENIA
  2. TRIFLUOPERAZINE [Concomitant]
     Active Substance: TRIFLUOPERAZINE\TRIFLUOPERAZINE HYDROCHLORIDE
     Indication: PRODUCT USED FOR UNKNOWN INDICATION
  3. TRIHEXYPHENIDYL [Suspect]
     Active Substance: TRIHEXYPHENIDYL
     Indication: TARDIVE DYSKINESIA
  4. ALPRAZOLAM. [Concomitant]
     Active Substance: ALPRAZOLAM
     Indication: PRODUCT USED FOR UNKNOWN INDICATION
  5. SULPIRIDE [Concomitant]
     Active Substance: SULPIRIDE
     Indication: PSYCHOTIC DISORDER
  6. CHLORPROMAZINE. [Concomitant]
     Active Substance: CHLORPROMAZINE
     Indication: PRODUCT USED FOR UNKNOWN INDICATION
     Dosage: BEFORE BEDTIME
  7. ESTAZOLAM. [Concomitant]
     Active Substance: ESTAZOLAM
     Indication: PRODUCT USED FOR UNKNOWN INDICATION
     Dosage: BEFORE BEDTIME
  8. OLANZAPINE. [Suspect]
     Active Substance: OLANZAPINE
     Indication: SCHIZOPHRENIA
  9. TRIHEXYPHENIDYL [Suspect]
     Active Substance: TRIHEXYPHENIDYL
     Indication: PARKINSONISM

REACTIONS (23)
  - Tremor [Unknown]
  - Heat stroke [Recovered/Resolved]
  - Extra dose administered [None]
  - Cerebellar infarction [None]
  - Insomnia [None]
  - Acute kidney injury [Recovering/Resolving]
  - Electrocardiogram QT prolonged [None]
  - Dyskinesia [Unknown]
  - Pneumonia aspiration [None]
  - Electrocardiogram ST-T change [None]
  - Ventricular extrasystoles [None]
  - Acute respiratory failure [Unknown]
  - Sinus tachycardia [None]
  - Disease recurrence [None]
  - Dysphoria [None]
  - Blood pressure decreased [None]
  - Hypokalaemia [None]
  - Hallucination, auditory [None]
  - Tardive dyskinesia [None]
  - Cerebral infarction [None]
  - Anxiety [None]
  - Drug interaction [Unknown]
  - Choking [None]

NARRATIVE: CASE EVENT DATE: 20120710
